FAERS Safety Report 10785375 (Version 1)
Quarter: 2015Q1

REPORT INFORMATION
  Report Type: Spontaneous
  Country: US (occurrence: None)
  Receive Date: 20150210
  Receipt Date: 20150210
  Transmission Date: 20150721
  Serious: Yes (Death)
  Sender: FDA-Public Use
  Company Number: None

PATIENT
  Age: 92 Year
  Sex: Female
  Weight: 59.1 kg

DRUGS (11)
  1. FECAL MICROBIOTIC TRANSPLANT [Suspect]
     Active Substance: FECAL MICROBIOTA
     Indication: CLOSTRIDIUM DIFFICILE INFECTION
     Dosage: 200 ML ONCE UPPER ENDOSCOPY
     Dates: start: 20131211
  2. ASCORBIC ACID. [Concomitant]
     Active Substance: ASCORBIC ACID
  3. LEVOTHYROXINE [Concomitant]
     Active Substance: LEVOTHYROXINE
  4. OMEPRAZOLE. [Concomitant]
     Active Substance: OMEPRAZOLE
  5. TRAMADOL [Concomitant]
     Active Substance: TRAMADOL
  6. METROPROLOL [Concomitant]
     Active Substance: METOPROLOL
  7. CHOLECALCIFEROL/VITAMIN D3 [Concomitant]
  8. MIRTAZAPINE. [Concomitant]
     Active Substance: MIRTAZAPINE
  9. WARFARIN [Concomitant]
     Active Substance: WARFARIN
  10. RISPERIDONE. [Concomitant]
     Active Substance: RISPERIDONE
  11. COLLAGENASE [Concomitant]
     Active Substance: COLLAGENASE CLOSTRIDIUM HISTOLYTICUM

REACTIONS (11)
  - Asthenia [None]
  - Tachycardia [None]
  - Fatigue [None]
  - Flatulence [None]
  - Frequent bowel movements [None]
  - Pulse absent [None]
  - Localised infection [None]
  - Unresponsive to stimuli [None]
  - Abdominal distension [None]
  - Wound [None]
  - Abdominal discomfort [None]
